FAERS Safety Report 5463539-6 (Version None)
Quarter: 2007Q3

REPORT INFORMATION
  Report Type: 
  Country: None (occurrence: None)
  Receive Date: 20070920
  Receipt Date: 20070913
  Transmission Date: 20080115
  Serious: Yes (Hospitalization)
  Sender: FDA-Public Use
  Company Number: BE-SHR-BE-2007-034416

PATIENT
  Sex: Female

DRUGS (1)
  1. MIRENA [Suspect]
     Dosage: 20 A?G/DAY, CONT
     Route: 015

REACTIONS (3)
  - ABSCESS [None]
  - PELVIC INFLAMMATORY DISEASE [None]
  - PNEUMONIA STREPTOCOCCAL [None]
